FAERS Safety Report 14794263 (Version 1)
Quarter: 2018Q2

REPORT INFORMATION
  Report Type: Spontaneous
  Country: JP (occurrence: JP)
  Receive Date: 20180423
  Receipt Date: 20180423
  Transmission Date: 20180711
  Serious: Yes (Hospitalization)
  Sender: FDA-Public Use
  Company Number: JP-ABBVIE-18K-087-2223130-00

PATIENT
  Age: 74 Year
  Sex: Female

DRUGS (2)
  1. DUODOPA [Suspect]
     Active Substance: CARBIDOPA\LEVODOPA
     Indication: PRODUCT USED FOR UNKNOWN INDICATION
     Dosage: MD: 5 ML, CD: 1.6 ML/HR X 16 HR
     Route: 050
     Dates: start: 20170911, end: 20170917
  2. DUODOPA [Suspect]
     Active Substance: CARBIDOPA\LEVODOPA
     Dosage: CD: 2.5 ML/HR X 16 HR
     Route: 050
     Dates: start: 20171215

REACTIONS (2)
  - Dyskinesia [Not Recovered/Not Resolved]
  - Spinal compression fracture [Unknown]
